FAERS Safety Report 7110633-X (Version None)
Quarter: 2010Q4

REPORT INFORMATION
  Report Type: 
  Country: None (occurrence: None)
  Receive Date: 20101118
  Receipt Date: 20080523
  Transmission Date: 20110411
  Serious: Yes (Other)
  Sender: FDA-Public Use
  Company Number: FI-ROCHE-741070

PATIENT

DRUGS (5)
  1. HERCEPTIN [Suspect]
     Route: 065
     Dates: start: 20070101
  2. HERCEPTIN [Suspect]
     Route: 065
     Dates: start: 20080101
  3. XELODA [Suspect]
     Dosage: FREQUENCY: 3 CYCLES
     Route: 065
     Dates: start: 20080101
  4. DOCETAXEL [Concomitant]
     Dates: start: 20071201
  5. LAPATINIB [Concomitant]
     Dosage: FREQUNCY: 3 CYCLES
     Dates: start: 20080101

REACTIONS (1)
  - DISEASE PROGRESSION [None]
